FAERS Safety Report 25988634 (Version 1)
Quarter: 2025Q4

REPORT INFORMATION
  Report Type: Report from Study
  Country: US (occurrence: US)
  Receive Date: 20251103
  Receipt Date: 20251103
  Transmission Date: 20260118
  Serious: No
  Sender: SANDOZ
  Company Number: US-SANDOZ-SDZ2025US080979

PATIENT
  Age: 14 Year
  Sex: Male

DRUGS (2)
  1. OMNITROPE [Suspect]
     Active Substance: SOMATROPIN
     Indication: Short stature
     Dosage: 0.60 ML, QD (5 MG/ML POWDER AND SOLVENT FOR SOLUTION FOR INJECTION)
     Route: 058
     Dates: start: 20251029
  2. OMNITROPE [Suspect]
     Active Substance: SOMATROPIN
     Indication: Short stature
     Dosage: 0.60 ML, QD (5 MG/ML POWDER AND SOLVENT FOR SOLUTION FOR INJECTION)
     Route: 058
     Dates: start: 20251029

REACTIONS (3)
  - Injection site pain [Unknown]
  - Drug administered in wrong device [Unknown]
  - Device use issue [Unknown]

NARRATIVE: CASE EVENT DATE: 20251029
